FAERS Safety Report 22080957 (Version 2)
Quarter: 2023Q1

REPORT INFORMATION
  Report Type: Spontaneous
  Country: JP (occurrence: JP)
  Receive Date: 20230309
  Receipt Date: 20230323
  Transmission Date: 20230417
  Serious: Yes (Hospitalization)
  Sender: FDA-Public Use
  Company Number: JP-NORGINE LIMITED-NOR202300895

PATIENT
  Age: 19 Year
  Sex: Female

DRUGS (1)
  1. MOVIPREP [Suspect]
     Active Substance: ASCORBIC ACID\POLYETHYLENE GLYCOL 3350\POTASSIUM CHLORIDE\SODIUM ASCORBATE\SODIUM CHLORIDE\SODIUM SU
     Indication: Colonoscopy
     Route: 048
     Dates: start: 202209, end: 202209

REACTIONS (2)
  - Subileus [Unknown]
  - Gastrointestinal hypomotility [Unknown]

NARRATIVE: CASE EVENT DATE: 20220101
